FAERS Safety Report 20110310 (Version 2)
Quarter: 2025Q1

REPORT INFORMATION
  Report Type: Spontaneous
  Country: US (occurrence: US)
  Receive Date: 20211124
  Receipt Date: 20250108
  Transmission Date: 20250408
  Serious: Yes (Death, Hospitalization)
  Sender: NOVO NORDISK
  Company Number: US-NOVOPROD-774264

PATIENT
  Age: 76 Year
  Sex: Female

DRUGS (1)
  1. NOVOLOG [Suspect]
     Active Substance: INSULIN ASPART
     Indication: Diabetes mellitus
     Route: 058

REACTIONS (5)
  - Diabetic coma [Recovered/Resolved]
  - Cardiac failure [Fatal]
  - Renal failure [Fatal]
  - Cardiac valve disease [Fatal]
  - Hypervolaemia [Fatal]

NARRATIVE: CASE EVENT DATE: 20190101
